FAERS Safety Report 4838581-6 (Version None)
Quarter: 2005Q4

REPORT INFORMATION
  Report Type: 
  Country: None (occurrence: None)
  Receive Date: 20051123
  Receipt Date: 20051123
  Transmission Date: 20060501
  Serious: Yes (Hospitalization)
  Sender: FDA-Public Use
  Company Number: None

PATIENT
  Age: 79 Year
  Sex: Male
  Weight: 61.9 kg

DRUGS (8)
  1. DEXAMETHASONE [Suspect]
     Indication: CHEMOTHERAPY
     Dosage: 20MG, ONCE  IV, INTRAVEN
     Route: 042
  2. DIPHENHYDRAMINE HCL [Concomitant]
  3. SERTRALINE HCL [Concomitant]
  4. SIMVASTATIN [Concomitant]
  5. DM 10/GUAIFENESN [Concomitant]
  6. TERAZOSIN HCL [Concomitant]
  7. OXYCODONE HCL [Concomitant]
  8. BUSPIRONE HCL [Concomitant]

REACTIONS (1)
  - HYPERGLYCAEMIA [None]
